FAERS Safety Report 19144346 (Version 2)
Quarter: 2021Q2

REPORT INFORMATION
  Report Type: Spontaneous
  Country: RU (occurrence: RU)
  Receive Date: 20210416
  Receipt Date: 20210503
  Transmission Date: 20210717
  Serious: Yes (Other)
  Sender: FDA-Public Use
  Company Number: RU-009507513-2104RUS002218

PATIENT
  Age: 55 Year
  Sex: Female
  Weight: 80 kg

DRUGS (4)
  1. NOLIPREL [Concomitant]
     Indication: BLOOD PRESSURE INCREASED
     Dosage: UNK
  2. CARSIL [Concomitant]
     Active Substance: DIETARY SUPPLEMENT\HERBALS\MILK THISTLE
  3. VELMETIA [Suspect]
     Active Substance: METFORMIN\SITAGLIPTIN
     Indication: TYPE 2 DIABETES MELLITUS
     Dosage: 1 DOSAGE FORM, IN MORNING AND EVENING
     Route: 048
     Dates: start: 202103, end: 20210408
  4. VELMETIA [Suspect]
     Active Substance: METFORMIN\SITAGLIPTIN
     Dosage: UNK
     Dates: start: 202104

REACTIONS (6)
  - Suspected counterfeit product [Unknown]
  - Diabetes mellitus [Recovered/Resolved]
  - Asthenia [Recovered/Resolved]
  - Suspected product quality issue [Unknown]
  - Drug ineffective [Recovered/Resolved]
  - Blood glucose increased [Recovered/Resolved]

NARRATIVE: CASE EVENT DATE: 2021
